FAERS Safety Report 4407807-5 (Version None)
Quarter: 2004Q3

REPORT INFORMATION
  Report Type: 
  Country: None (occurrence: None)
  Receive Date: 20040726
  Receipt Date: 20040713
  Transmission Date: 20050211
  Serious: Yes (Hospitalization)
  Sender: FDA-Public Use
  Company Number: AU-AMGEN-US083368

PATIENT
  Sex: Female

DRUGS (4)
  1. NEUPOGEN [Suspect]
     Indication: BLOOD STEM CELL HARVEST
     Route: 058
     Dates: start: 20040709, end: 20040713
  2. NORVASC [Concomitant]
  3. FEFOL [Concomitant]
  4. COVERSYL [Concomitant]

REACTIONS (6)
  - HOARSENESS [None]
  - NAUSEA [None]
  - PAIN [None]
  - RHINITIS [None]
  - UPPER RESPIRATORY TRACT INFECTION [None]
  - VOMITING [None]
